FAERS Safety Report 16430945 (Version 1)
Quarter: 2019Q3

REPORT INFORMATION
  Report Type: Spontaneous
  Country: US (occurrence: US)
  Receive Date: 20190613
  Receipt Date: 20190613
  Transmission Date: 20191004
  Serious: No
  Sender: FDA-Public Use
  Company Number: None

PATIENT
  Age: 33 Year
  Sex: Female
  Weight: 78.93 kg

DRUGS (3)
  1. NAXPLANON [Concomitant]
  2. ENTYVIO [Concomitant]
     Active Substance: VEDOLIZUMAB
  3. NEXPLANON [Suspect]
     Active Substance: ETONOGESTREL
     Dates: start: 20190610

REACTIONS (4)
  - Nausea [None]
  - Dizziness [None]
  - Headache [None]
  - Implantation complication [None]

NARRATIVE: CASE EVENT DATE: 20190613
